FAERS Safety Report 4532296-X (Version None)
Quarter: 2004Q4

REPORT INFORMATION
  Report Type: 
  Country: None (occurrence: None)
  Receive Date: 20041217
  Receipt Date: 20041206
  Transmission Date: 20050328
  Serious: Yes (Other)
  Sender: FDA-Public Use
  Company Number: 2004104944

PATIENT
  Age: 57 Year
  Sex: Female
  Weight: 81.6475 kg

DRUGS (7)
  1. CELEBREX [Suspect]
     Indication: ARTHRITIS
     Dosage: 200 MG (100 MG, 2 IN 1 D), ORAL
     Route: 048
     Dates: end: 20040101
  2. MOBIC [Suspect]
     Indication: PAIN
  3. CARVEDILOL [Concomitant]
  4. CLONIDINE HCL [Concomitant]
  5. TELMISARTAN (TELMISARTAN) [Concomitant]
  6. FUROSEMIDE [Concomitant]
  7. OMEPRAZOLE [Concomitant]

REACTIONS (7)
  - BLOOD PRESSURE FLUCTUATION [None]
  - HYPERTENSION [None]
  - MOBILITY DECREASED [None]
  - PAIN EXACERBATED [None]
  - STENT PLACEMENT [None]
  - STRESS SYMPTOMS [None]
  - THERAPY NON-RESPONDER [None]
